FAERS Safety Report 6746339-6 (Version None)
Quarter: 2010Q2

REPORT INFORMATION
  Report Type: 
  Country: None (occurrence: None)
  Receive Date: 20100528
  Receipt Date: 20100521
  Transmission Date: 20101027
  Serious: Yes (Other)
  Sender: FDA-Public Use
  Company Number: US-PFIZER INC-2010061779

PATIENT
  Sex: Female
  Weight: 57.143 kg

DRUGS (2)
  1. CELEBREX [Suspect]
     Indication: SHOULDER OPERATION
     Dosage: 200 MG, 2X/DAY
     Route: 048
     Dates: start: 20100510, end: 20100511
  2. SYNTHROID [Concomitant]
     Dosage: UNK

REACTIONS (5)
  - CHEST DISCOMFORT [None]
  - EXTRASYSTOLES [None]
  - PALPITATIONS [None]
  - PRURITUS [None]
  - RASH [None]
